FAERS Safety Report 17228378 (Version 16)
Quarter: 2022Q1

REPORT INFORMATION
  Report Type: Report from Study
  Country: US (occurrence: US)
  Receive Date: 20200103
  Receipt Date: 20220105
  Transmission Date: 20220423
  Serious: Yes (Hospitalization, Other)
  Sender: FDA-Public Use
  Company Number: US-SHIRE-US201945625

PATIENT
  Age: 57 Year
  Sex: Female
  Weight: 72 kg

DRUGS (31)
  1. HUMAN IMMUNOGLOBULIN G [Suspect]
     Active Substance: HUMAN IMMUNOGLOBULIN G
     Indication: Immunodeficiency common variable
     Dosage: 30 GRAM, Q4WEEKS
     Route: 042
     Dates: start: 20161205
  2. HUMAN IMMUNOGLOBULIN G [Suspect]
     Active Substance: HUMAN IMMUNOGLOBULIN G
     Indication: Selective IgG subclass deficiency
  3. VYVANSE [Concomitant]
     Active Substance: LISDEXAMFETAMINE DIMESYLATE
     Route: 065
  4. ACETAMINOPHEN [Concomitant]
     Active Substance: ACETAMINOPHEN
     Route: 065
  5. DIPHENHYDRAMINE [Concomitant]
     Active Substance: DIPHENHYDRAMINE
     Route: 065
  6. LIDOCAINE [Concomitant]
     Active Substance: LIDOCAINE
     Route: 065
  7. SODIUM CHLORIDE [Concomitant]
     Active Substance: SODIUM CHLORIDE
     Route: 065
  8. EPINEPHRINE [Concomitant]
     Active Substance: EPINEPHRINE
     Route: 065
  9. GABAPENTIN [Concomitant]
     Active Substance: GABAPENTIN
     Route: 065
  10. ROBAXIN [Concomitant]
     Active Substance: METHOCARBAMOL
     Route: 065
  11. CEFADROXIL [Concomitant]
     Active Substance: CEFADROXIL
     Route: 065
  12. CYMBALTA [Concomitant]
     Active Substance: DULOXETINE HYDROCHLORIDE
     Route: 065
  13. TESTOSTERONE [Concomitant]
     Active Substance: TESTOSTERONE
     Route: 065
  14. PROGESTERONE [Concomitant]
     Active Substance: PROGESTERONE
     Route: 065
  15. ARMOUR THYROID [Concomitant]
     Active Substance: THYROID, PORCINE
     Route: 065
  16. DULCOLAX BALANCE [Concomitant]
     Active Substance: POLYETHYLENE GLYCOL 3350
     Route: 065
  17. VITAMINS [Concomitant]
     Active Substance: VITAMINS
     Route: 065
  18. HYALURONIC ACID [Concomitant]
     Active Substance: HYALURONIC ACID
     Route: 065
  19. XOLAIR [Concomitant]
     Active Substance: OMALIZUMAB
     Route: 065
  20. GENOTROPIN [Concomitant]
     Active Substance: SOMATROPIN
     Route: 065
  21. TRAZODONE [Concomitant]
     Active Substance: TRAZODONE HYDROCHLORIDE
     Route: 065
  22. HYDROXYZINE [Concomitant]
     Active Substance: HYDROXYZINE HYDROCHLORIDE
     Route: 065
  23. SYNTHROID [Concomitant]
     Active Substance: LEVOTHYROXINE SODIUM
     Route: 065
  24. MODERNA COVID-19 VACCINE [Concomitant]
     Active Substance: ELASOMERAN
     Route: 065
  25. IBUPROFEN [Concomitant]
     Active Substance: IBUPROFEN
  26. TOPIRAMATE [Concomitant]
     Active Substance: TOPIRAMATE
  27. DULOXETINE HYDROCHLORIDE [Concomitant]
     Active Substance: DULOXETINE HYDROCHLORIDE
  28. LEVOTHYROXINE SODIUM [Concomitant]
     Active Substance: LEVOTHYROXINE SODIUM
  29. MIDODRINE HYDROCHLORIDE [Concomitant]
     Active Substance: MIDODRINE HYDROCHLORIDE
  30. OXYBUTYNIN CHLORIDE [Concomitant]
     Active Substance: OXYBUTYNIN CHLORIDE
  31. TAMSULOSIN [Concomitant]
     Active Substance: TAMSULOSIN

REACTIONS (37)
  - Escherichia sepsis [Unknown]
  - Kidney infection [Unknown]
  - Staphylococcal infection [Unknown]
  - Nephrolithiasis [Unknown]
  - Tooth infection [Recovered/Resolved]
  - Swelling face [Unknown]
  - Oral disorder [Unknown]
  - Oral pain [Unknown]
  - Idiopathic urticaria [Unknown]
  - Throat tightness [Unknown]
  - Pain [Unknown]
  - Rash [Unknown]
  - Fatigue [Unknown]
  - Headache [Unknown]
  - Sinus disorder [Unknown]
  - Sinusitis [Unknown]
  - Infusion related reaction [Unknown]
  - Bone pain [Unknown]
  - Thirst [Unknown]
  - Myalgia [Unknown]
  - Tachypnoea [Unknown]
  - Diarrhoea [Unknown]
  - Pleurisy [Unknown]
  - Blood pressure increased [Unknown]
  - Pyrexia [Unknown]
  - Chest discomfort [Unknown]
  - Stent placement [Unknown]
  - Nausea [Unknown]
  - Groin pain [Unknown]
  - Pain in extremity [Unknown]
  - Dry mouth [Unknown]
  - Aphthous ulcer [Unknown]
  - Stent removal [Unknown]
  - COVID-19 [Unknown]
  - Off label use [Unknown]
  - Ear pain [Unknown]
  - Paranasal sinus discomfort [Unknown]

NARRATIVE: CASE EVENT DATE: 20210904
